FAERS Safety Report 23829586 (Version 1)
Quarter: 2024Q2

REPORT INFORMATION
  Report Type: Spontaneous
  Country: IT (occurrence: IT)
  Receive Date: 20240508
  Receipt Date: 20240508
  Transmission Date: 20240716
  Serious: Yes (Death, Other)
  Sender: FDA-Public Use
  Company Number: IT-AMGEN-ITASP2024088472

PATIENT

DRUGS (1)
  1. ADALIMUMAB [Suspect]
     Active Substance: ADALIMUMAB\ISOPROPYL ALCOHOL
     Indication: Psoriasis
     Dosage: UNK
     Route: 065

REACTIONS (18)
  - Oncologic complication [Fatal]
  - Metastases to lymph nodes [Unknown]
  - Testis cancer [Unknown]
  - Prostate cancer [Unknown]
  - Renal cancer [Unknown]
  - Colorectal cancer [Unknown]
  - Bladder cancer [Unknown]
  - Uterine cancer [Unknown]
  - Thyroid cancer [Unknown]
  - Laryngeal cancer [Unknown]
  - Hepatocellular carcinoma [Unknown]
  - Lung neoplasm malignant [Unknown]
  - Breast cancer [Unknown]
  - Hodgkin^s disease [Unknown]
  - Non-Hodgkin^s lymphoma [Unknown]
  - Malignant melanoma [Unknown]
  - Skin cancer [Unknown]
  - Psoriasis [Unknown]
